FAERS Safety Report 11773517 (Version 1)
Quarter: 2015Q4

REPORT INFORMATION
  Report Type: Spontaneous
  Country: US (occurrence: US)
  Receive Date: 20151124
  Receipt Date: 20151124
  Transmission Date: 20160304
  Serious: No
  Sender: FDA-Public Use
  Company Number: US-BAYER-2015-472880

PATIENT
  Age: 81 Year
  Sex: Male
  Weight: 73.92 kg

DRUGS (2)
  1. ALEVE [Suspect]
     Active Substance: NAPROXEN SODIUM
     Indication: NECK PAIN
     Dosage: 2 DF, BID
     Route: 048
     Dates: start: 20151113
  2. HYDROZONE PLUS [Concomitant]
     Dosage: UNK

REACTIONS (2)
  - Faeces discoloured [Not Recovered/Not Resolved]
  - Product use issue [None]

NARRATIVE: CASE EVENT DATE: 20151117
